FAERS Safety Report 24454404 (Version 2)
Quarter: 2024Q4

REPORT INFORMATION
  Report Type: Report from Study
  Country: RO (occurrence: RO)
  Receive Date: 20241017
  Receipt Date: 20241018
  Transmission Date: 20250114
  Serious: No
  Sender: ROCHE
  Company Number: RO-ROCHE-3464405

PATIENT
  Age: 83 Year
  Sex: Female

DRUGS (1)
  1. MABTHERA [Suspect]
     Active Substance: RITUXIMAB
     Indication: Product used for unknown indication
     Dosage: STRENGTH : 1400 MG
     Route: 065

REACTIONS (2)
  - Malaise [Unknown]
  - Weight decreased [Unknown]
